FAERS Safety Report 8127742-9 (Version None)
Quarter: 2012Q1

REPORT INFORMATION
  Report Type: 
  Country: None (occurrence: None)
  Receive Date: 20120210
  Receipt Date: 20120201
  Transmission Date: 20120608
  Serious: Yes (Hospitalization)
  Sender: FDA-Public Use
  Company Number: IE-NOVOPROD-342548

PATIENT
  Age: 60 Year
  Sex: Female

DRUGS (11)
  1. PANTOPRAZOLE [Concomitant]
     Dosage: 40 MG, UNK
  2. NITROFURANTOIN [Concomitant]
     Dosage: 50MG NOCTE
  3. CRESTOR [Concomitant]
  4. LEXAPRO [Concomitant]
     Dosage: 15 MG, QD
     Dates: start: 20110712
  5. DIAMICRON [Concomitant]
     Dosage: 120 MG, QD
  6. ASPIRIN [Concomitant]
     Dosage: 75 MG, UNK
  7. LEVOTHYROXINE SODIUM [Concomitant]
  8. BISOPROLOL FUMARATE [Concomitant]
  9. METFORMIN HCL [Concomitant]
     Dosage: 850 MG, BID
  10. VICTOZA [Suspect]
     Indication: TYPE 2 DIABETES MELLITUS
     Dosage: UNK
     Route: 065
     Dates: start: 20110712, end: 20111101
  11. LYRICA [Concomitant]

REACTIONS (3)
  - FATIGUE [None]
  - HEPATITIS [None]
  - JAUNDICE [None]
